FAERS Safety Report 13656591 (Version 2)
Quarter: 2017Q3

REPORT INFORMATION
  Report Type: Spontaneous
  Country: SE (occurrence: SE)
  Receive Date: 20170615
  Receipt Date: 20170705
  Transmission Date: 20171127
  Serious: Yes (Other)
  Sender: FDA-Public Use
  Company Number: SE-PFIZER INC-2017257535

PATIENT
  Age: 75 Year
  Sex: Female

DRUGS (1)
  1. FOLACIN [Suspect]
     Active Substance: FOLIC ACID
     Indication: HAEMOGLOBIN DECREASED
     Dosage: 1 MG, UNK
     Dates: start: 201706

REACTIONS (3)
  - Pruritus [Unknown]
  - Rash [Unknown]
  - Anaemia [Not Recovered/Not Resolved]
